FAERS Safety Report 8877605 (Version 1)
Quarter: 2012Q4

REPORT INFORMATION
  Report Type: 
  Country: AR (occurrence: AR)
  Receive Date: 20121024
  Receipt Date: 20121024
  Transmission Date: 20130627
  Serious: Yes (Other)
  Sender: FDA-Public Use
  Company Number: AR-AMGEN-ARGSP2012067073

PATIENT
  Age: 51 Year
  Sex: Female

DRUGS (4)
  1. ENBREL [Suspect]
     Indication: RHEUMATOID ARTHRITIS
     Dosage: 50 mg, weekly
     Route: 058
     Dates: start: 20050830, end: 201207
  2. LEFLUNOMIDE [Concomitant]
     Dosage: UNK
  3. OMEPRAZOL                          /00661201/ [Concomitant]
     Dosage: UNK
  4. IBUPIRAC                           /00109201/ [Concomitant]
     Dosage: UNK

REACTIONS (1)
  - Wrist deformity [Recovered/Resolved]
